FAERS Safety Report 15894334 (Version 1)
Quarter: 2019Q1

REPORT INFORMATION
  Report Type: Spontaneous
  Country: US (occurrence: US)
  Receive Date: 20190131
  Receipt Date: 20190131
  Transmission Date: 20190417
  Serious: Yes (Other)
  Sender: FDA-Public Use
  Company Number: None

PATIENT
  Age: 6 Month
  Sex: Female
  Weight: 8.1 kg

DRUGS (2)
  1. FAMILY WELLNESS CHILDRENS IBUPROFEN [Suspect]
     Active Substance: IBUPROFEN
     Indication: PYREXIA
     Dosage: ?          QUANTITY:1.25 ML;?
     Route: 048
     Dates: start: 20190108, end: 20190108
  2. FAMILY WELLNESS CHILDRENS IBUPROFEN [Suspect]
     Active Substance: IBUPROFEN
     Indication: NASOPHARYNGITIS
     Dosage: ?          QUANTITY:1.25 ML;?
     Route: 048
     Dates: start: 20190108, end: 20190108

REACTIONS (4)
  - Infantile vomiting [None]
  - Diarrhoea [None]
  - Underdose [None]
  - Product complaint [None]

NARRATIVE: CASE EVENT DATE: 20190108
